FAERS Safety Report 17953299 (Version 1)
Quarter: 2020Q2

REPORT INFORMATION
  Report Type: Spontaneous
  Country: IE (occurrence: IE)
  Receive Date: 20200627
  Receipt Date: 20200627
  Transmission Date: 20200714
  Serious: Yes (Life-Threatening, Other)
  Sender: FDA-Public Use
  Company Number: NVSC2020IE181635

PATIENT
  Age: 72 Year
  Sex: Female
  Weight: 37 kg

DRUGS (18)
  1. LERCANIDIPINE [Suspect]
     Active Substance: LERCANIDIPINE
     Indication: PRODUCT USED FOR UNKNOWN INDICATION
     Dosage: UNK
     Route: 048
     Dates: start: 20200417
  2. HARTMANN^S SOLUTION (G) [Concomitant]
     Indication: PRODUCT USED FOR UNKNOWN INDICATION
     Dosage: 1 OT, Q12H (1 L ADMINISTERED OVER 12 HOURS)
     Route: 065
     Dates: start: 20200418, end: 20200418
  3. PARACETAMOL 10 MG/ML SOLUTION FOR INFUSION [Suspect]
     Active Substance: ACETAMINOPHEN
     Dosage: 1 G (1 G QDS PRESCRIBED VIA PO/IV ROUTE. 11 DOSES ADMINISTERED OVER 4 DAYS. AS PER PATIENT NOTES AND
     Route: 048
     Dates: start: 20200417, end: 20200417
  4. ADVAGRAF [Concomitant]
     Active Substance: TACROLIMUS
     Indication: LIVER TRANSPLANT
     Dosage: UNK
     Route: 065
     Dates: end: 20200419
  5. IPRATROPIUM (G) [Concomitant]
     Indication: PRODUCT USED FOR UNKNOWN INDICATION
     Dosage: (1 PUFF DAILY)
     Route: 055
     Dates: end: 20200419
  6. PARACETAMOL 10 MG/ML SOLUTION FOR INFUSION [Suspect]
     Active Substance: ACETAMINOPHEN
     Indication: PAIN
     Dosage: 1 G QDS PRESCRIBED VIA PO/IV ROUTE. 11 DOSES ADMINISTERED OVER 4 DAYS. AS PER PATIENT NOTES AND DRUG
     Route: 048
     Dates: start: 20200416, end: 20200416
  7. PARACETAMOL 10 MG/ML SOLUTION FOR INFUSION [Suspect]
     Active Substance: ACETAMINOPHEN
     Dosage: 1 G
     Route: 048
     Dates: start: 20200419, end: 20200419
  8. ONDANSETRON (G) [Concomitant]
     Indication: PRODUCT USED FOR UNKNOWN INDICATION
     Dosage: 1 DF, QD (4MG ONE IV DOSE ADMINISTERED)
     Route: 042
     Dates: start: 20200419, end: 20200419
  9. PARACETAMOL 10 MG/ML SOLUTION FOR INFUSION [Suspect]
     Active Substance: ACETAMINOPHEN
     Dosage: 1 G
     Route: 048
     Dates: start: 20200418, end: 20200418
  10. RELVAR ELLIPTA [Concomitant]
     Active Substance: FLUTICASONE FUROATE\VILANTEROL TRIFENATATE
     Indication: PRODUCT USED FOR UNKNOWN INDICATION
     Dosage: 1 DF, QD (92/22 MCG / 1 PUFF DAILY) POWDER FOR INHALATION
     Route: 055
  11. PALEXIA [Concomitant]
     Active Substance: TAPENTADOL HYDROCHLORIDE
     Dosage: (100MG AND 50MG TWICE A DAY)
     Route: 048
     Dates: start: 20200416, end: 20200419
  12. CREON [Concomitant]
     Active Substance: PANCRELIPASE AMYLASE\PANCRELIPASE LIPASE\PANCRELIPASE PROTEASE
     Indication: PRODUCT USED FOR UNKNOWN INDICATION
     Dosage: UNK
     Route: 065
     Dates: end: 20200419
  13. CLEXANE [Concomitant]
     Active Substance: ENOXAPARIN SODIUM
     Indication: PRODUCT USED FOR UNKNOWN INDICATION
     Dosage: UNK
     Route: 065
     Dates: start: 20200417, end: 20200419
  14. PANTOPRAZOLE [Concomitant]
     Active Substance: PANTOPRAZOLE
     Indication: PRODUCT USED FOR UNKNOWN INDICATION
     Dosage: 40 MG, QD
     Route: 065
     Dates: end: 20200419
  15. CALCICHEW [Concomitant]
     Active Substance: CALCIUM CARBONATE
     Indication: PRODUCT USED FOR UNKNOWN INDICATION
     Dosage: UNK
     Route: 065
  16. MACROLIEF [Concomitant]
     Indication: CONSTIPATION
     Dosage: 1 DF, QD (ONE SACHET TWICE A DAY)
     Route: 065
     Dates: start: 20200417, end: 20200419
  17. PALEXIA [Concomitant]
     Active Substance: TAPENTADOL HYDROCHLORIDE
     Indication: PAIN
     Dosage: UNK
     Route: 065
     Dates: start: 20200416, end: 20200419
  18. SENNA (G) [Concomitant]
     Indication: CONSTIPATION
     Dosage: 1 DF, QD (1 AT NIGHT)
     Route: 048
     Dates: start: 20200417, end: 20200419

REACTIONS (3)
  - Liver function test increased [Recovered/Resolved]
  - Incorrect dose administered [Recovered/Resolved]
  - International normalised ratio increased [Recovered/Resolved]

NARRATIVE: CASE EVENT DATE: 20200416
